FAERS Safety Report 6338532-1 (Version None)
Quarter: 2009Q3

REPORT INFORMATION
  Report Type: 
  Country: None (occurrence: None)
  Receive Date: 20090901
  Receipt Date: 20090825
  Transmission Date: 20100115
  Serious: Yes (Other)
  Sender: FDA-Public Use
  Company Number: 2009009583

PATIENT
  Sex: Male

DRUGS (3)
  1. PROVIGIL [Suspect]
     Indication: HYPOSOMNIA
     Dosage: SEE IMAGE, ORAL
     Route: 048
  2. COSOPT [Concomitant]
  3. XALATAN [Concomitant]

REACTIONS (4)
  - DIARRHOEA [None]
  - FATIGUE [None]
  - GLOSSODYNIA [None]
  - RETINAL DETACHMENT [None]
